FAERS Safety Report 7118375-1 (Version None)
Quarter: 2010Q4

REPORT INFORMATION
  Report Type: 
  Country: None (occurrence: None)
  Receive Date: 20101123
  Receipt Date: 20101115
  Transmission Date: 20110411
  Serious: Yes (Hospitalization)
  Sender: FDA-Public Use
  Company Number: US-US-EMD SERONO, INC.-231056J09USA

PATIENT
  Sex: Female

DRUGS (7)
  1. REBIF [Suspect]
     Indication: MULTIPLE SCLEROSIS
     Route: 058
     Dates: start: 20051011, end: 20060101
  2. REBIF [Suspect]
     Route: 058
     Dates: start: 20060101, end: 20070101
  3. REBIF [Suspect]
     Route: 058
     Dates: start: 20090122
  4. LISINOPRIL [Concomitant]
     Route: 065
  5. ZOVIA 1/35E-21 [Concomitant]
     Route: 065
  6. PREDNISONE [Concomitant]
     Route: 065
  7. HYDROCHLOROTHIAZIDE [Concomitant]
     Route: 065

REACTIONS (2)
  - COLITIS [None]
  - MULTIPLE SCLEROSIS RELAPSE [None]
